FAERS Safety Report 13316704 (Version 1)
Quarter: 2017Q1

REPORT INFORMATION
  Report Type: Spontaneous
  Country: DE (occurrence: DE)
  Receive Date: 20170310
  Receipt Date: 20170310
  Transmission Date: 20170428
  Serious: Yes (Hospitalization)
  Sender: FDA-Public Use
  Company Number: DE-ROCHE-1904019

PATIENT
  Age: 73 Year
  Sex: Male

DRUGS (2)
  1. MABTHERA [Suspect]
     Active Substance: RITUXIMAB
     Indication: CHRONIC LYMPHOCYTIC LEUKAEMIA
     Dosage: BETWEEN 25/JAN/2017 AND 27/JAN/2017 THE PATIENT RECEIVED THE 2ND CYCLE OF RITUXIMAB TOGETHER WITH BE
     Route: 042
     Dates: start: 20170104
  2. BENDAMUSTINE [Suspect]
     Active Substance: BENDAMUSTINE
     Indication: CHRONIC LYMPHOCYTIC LEUKAEMIA
     Dosage: BETWEEN 25/JAN/2017 AND 27/JAN/2017 THE PATIENT RECEIVED THE 2ND CYCLE OF RITUXIMAB TOGETHER WITH BE
     Route: 042
     Dates: start: 201701

REACTIONS (6)
  - Infusion related reaction [Unknown]
  - Rash [Unknown]
  - Weight decreased [Unknown]
  - Pancytopenia [Unknown]
  - Coronary artery disease [Unknown]
  - General physical health deterioration [Recovering/Resolving]

NARRATIVE: CASE EVENT DATE: 20170126
